FAERS Safety Report 7722414-4 (Version None)
Quarter: 2011Q3

REPORT INFORMATION
  Report Type: 
  Country: None (occurrence: None)
  Receive Date: 20110831
  Receipt Date: 20110823
  Transmission Date: 20111222
  Serious: Yes (Death, Other)
  Sender: FDA-Public Use
  Company Number: US-CELGENEUS-163-21880-11052476

PATIENT
  Sex: Male
  Weight: 68.1 kg

DRUGS (23)
  1. REVLIMID [Suspect]
     Dosage: 5 MILLIGRAM
     Route: 048
     Dates: start: 20090304, end: 20110518
  2. LORTAB [Concomitant]
     Dosage: 10 MILLIGRAM
     Route: 065
  3. TERAZOSIN HCL [Concomitant]
     Dosage: 5 MILLIGRAM
     Route: 065
  4. PROSCAR [Concomitant]
     Dosage: 5 MILLIGRAM
     Route: 065
  5. ATIVAN [Concomitant]
     Route: 065
  6. DEXAMETHASONE [Concomitant]
     Route: 065
  7. POTASSIUM CHLORIDE [Concomitant]
     Route: 065
  8. SANDOSTATIN [Concomitant]
     Route: 065
  9. TARCEVA [Concomitant]
     Dosage: 100 MILLIGRAM
     Route: 065
     Dates: start: 20100816
  10. TARCEVA [Concomitant]
     Dosage: 100 MILLIGRAM
     Route: 065
  11. ATIVAN [Concomitant]
     Dosage: .5 MILLIGRAM
     Route: 065
  12. NAPROXEN [Concomitant]
     Dosage: 220 MILLIGRAM
     Route: 065
  13. OMEPRAZOLE [Concomitant]
     Dosage: 20 MILLIGRAM
     Route: 065
  14. ARANESP [Concomitant]
     Route: 065
  15. ASPIRIN [Concomitant]
     Route: 065
  16. LASIX [Concomitant]
     Dosage: 40 MILLIGRAM
     Route: 065
  17. NEUPOGEN [Concomitant]
     Dosage: 480 MICROGRAM
     Route: 058
  18. SPIRIVA [Concomitant]
     Route: 055
  19. ZOFRAN [Concomitant]
     Indication: NAUSEA
     Dosage: 8 MILLIGRAM
     Route: 065
  20. MULTIVITAMIN COMPLETE [Concomitant]
     Route: 065
  21. MUSCLE RELAXER [Concomitant]
     Route: 065
  22. PRILOSEC [Concomitant]
     Route: 065
  23. PAREGORIC [Concomitant]
     Route: 065

REACTIONS (1)
  - LUNG ADENOCARCINOMA [None]
